FAERS Safety Report 8051279-9 (Version None)
Quarter: 2012Q1

REPORT INFORMATION
  Report Type: 
  Country: None (occurrence: None)
  Receive Date: 20120117
  Receipt Date: 20120109
  Transmission Date: 20120608
  Serious: Yes (Hospitalization, Other)
  Sender: FDA-Public Use
  Company Number: NL-MEDIMMUNE-MEDI-0013735

PATIENT
  Sex: Female
  Weight: 8.08 kg

DRUGS (4)
  1. FERROUS GLUCONATE [Concomitant]
  2. SYNAGIS [Suspect]
     Route: 030
     Dates: start: 20110915, end: 20120103
  3. ACETYLSALICYLATE CALCIUM [Concomitant]
  4. SYNAGIS [Suspect]
     Route: 030
     Dates: start: 20101001, end: 20110101

REACTIONS (11)
  - HYPOPHAGIA [None]
  - NASOPHARYNGITIS [None]
  - RHINORRHOEA [None]
  - PYREXIA [None]
  - HAEMOPHILUS INFECTION [None]
  - CROUP INFECTIOUS [None]
  - RESPIRATORY TRACT INFECTION BACTERIAL [None]
  - NASAL CONGESTION [None]
  - COUGH [None]
  - RESPIRATORY TRACT INFECTION [None]
  - DYSPNOEA [None]
